FAERS Safety Report 12128252 (Version 1)
Quarter: 2016Q1

REPORT INFORMATION
  Report Type: Spontaneous
  Country: NL (occurrence: NL)
  Receive Date: 20160229
  Receipt Date: 20160229
  Transmission Date: 20160526
  Serious: Yes (Death, Hospitalization)
  Sender: FDA-Public Use
  Company Number: NL-IPCA LABORATORIES LIMITED-IPC201602-000285

PATIENT
  Age: 36 Year
  Sex: Male

DRUGS (9)
  1. FENTANYL. [Suspect]
     Active Substance: FENTANYL
     Route: 062
  2. CARBOPLATIN. [Concomitant]
     Active Substance: CARBOPLATIN
  3. METOCLOPRAMIDE HYDROCHLORIDE. [Suspect]
     Active Substance: METOCLOPRAMIDE HYDROCHLORIDE
  4. DEXAMETHASONE. [Suspect]
     Active Substance: DEXAMETHASONE
  5. DEXAMETHASONE. [Suspect]
     Active Substance: DEXAMETHASONE
     Route: 040
  6. DEXAMETHASONE. [Suspect]
     Active Substance: DEXAMETHASONE
  7. FENTANYL. [Suspect]
     Active Substance: FENTANYL
  8. OXYCODONE [Suspect]
     Active Substance: OXYCODONE
  9. ETOPOSIDE. [Concomitant]
     Active Substance: ETOPOSIDE

REACTIONS (3)
  - Paraganglion neoplasm [Fatal]
  - Condition aggravated [Fatal]
  - Cardiomyopathy [Fatal]
